FAERS Safety Report 7416516-X (Version None)
Quarter: 2011Q2

REPORT INFORMATION
  Report Type: 
  Country: None (occurrence: None)
  Receive Date: 20110414
  Receipt Date: 20110405
  Transmission Date: 20111010
  Serious: Yes (Death, Hospitalization)
  Sender: FDA-Public Use
  Company Number: US-MPIJNJ-2011-00774

PATIENT
  Sex: Male

DRUGS (1)
  1. VELCADE [Suspect]
     Indication: LUNG NEOPLASM MALIGNANT
     Dosage: 2.2 MG, UNK
     Route: 040
     Dates: start: 20110217

REACTIONS (4)
  - PNEUMONIA [None]
  - CARDIAC FAILURE CONGESTIVE [None]
  - CHRONIC OBSTRUCTIVE PULMONARY DISEASE [None]
  - DEATH [None]
